FAERS Safety Report 5401839-6 (Version None)
Quarter: 2007Q3

REPORT INFORMATION
  Report Type: 
  Country: None (occurrence: None)
  Receive Date: 20070726
  Receipt Date: 20070718
  Transmission Date: 20080115
  Serious: Yes (Hospitalization, Other)
  Sender: FDA-Public Use
  Company Number: 2007SP006804

PATIENT
  Age: 66 Year
  Sex: Male

DRUGS (1)
  1. PEG-INTRON [Suspect]
     Indication: MALIGNANT MELANOMA
     Dosage: ; SC
     Route: 058
     Dates: start: 20030210, end: 20070402

REACTIONS (2)
  - FALL [None]
  - PARKINSON'S DISEASE [None]
